FAERS Safety Report 9342926 (Version 2)
Quarter: 2013Q2

REPORT INFORMATION
  Report Type: Spontaneous
  Country: ES (occurrence: None)
  Receive Date: 20130607
  Receipt Date: 20130614
  Transmission Date: 20140414
  Serious: Yes (Other)
  Sender: FDA-Public Use
  Company Number: 2013AP005710

PATIENT
  Age: 78 Year
  Sex: Female

DRUGS (9)
  1. LETROZOLE [Suspect]
     Indication: CHEMOTHERAPY
  2. LETROZOLE (LETROZOLE) [Concomitant]
  3. EXFORGE (DIOVAN AMLO) [Concomitant]
  4. ADIRO (ACETYLSALICYLIC ACID) [Concomitant]
  5. SIMVASTATINA (SIMVASTATIN) [Concomitant]
  6. DICLOFENACO [Concomitant]
  7. PANTOPRAZOL [Concomitant]
  8. FUROSEMIDA [Concomitant]
  9. ZOLPIDEM (ZOLPIDEM) [Concomitant]

REACTIONS (3)
  - Hypersensitivity [None]
  - Product quality issue [None]
  - Product substitution issue [None]
